FAERS Safety Report 5024181-4 (Version None)
Quarter: 2006Q2

REPORT INFORMATION
  Report Type: 
  Country: None (occurrence: None)
  Receive Date: 20060607
  Receipt Date: 20060603
  Transmission Date: 20061013
  Serious: Yes (Hospitalization)
  Sender: FDA-Public Use
  Company Number: 218244

PATIENT
  Age: 63 Year
  Sex: Female
  Weight: 46 kg

DRUGS (4)
  1. AVASTIN   (BEVACIZUMAB) P [Suspect]
     Indication: COLORECTAL CANCER METASTATIC
     Dosage: 345 MG, Q3W, INTRAVENOUS
     Route: 042
     Dates: start: 20050915
  2. CAPECITABINE (CAPECITABINE) [Suspect]
     Indication: COLORECTAL CANCER METASTATIC
     Dosage: 3000 MG, ORAL
     Route: 048
     Dates: start: 20050916, end: 20050919
  3. IRINOTECAN HCL [Suspect]
     Indication: COLORECTAL CANCER METASTATIC
     Dosage: 360 MG, Q3W, INTRAVENOUS
     Route: 042
     Dates: start: 20050915
  4. ESOMEPRAZOLE                 (ESOMEPRAZOLE) [Concomitant]

REACTIONS (7)
  - ALANINE AMINOTRANSFERASE INCREASED [None]
  - ASPARTATE AMINOTRANSFERASE INCREASED [None]
  - BLOOD SODIUM INCREASED [None]
  - DIARRHOEA [None]
  - NAUSEA [None]
  - PYREXIA [None]
  - VOMITING [None]
